FAERS Safety Report 19861246 (Version 1)
Quarter: 2021Q3

REPORT INFORMATION
  Report Type: Spontaneous
  Country: US (occurrence: US)
  Receive Date: 20210921
  Receipt Date: 20210921
  Transmission Date: 20211014
  Serious: Yes (Other)
  Sender: FDA-Public Use
  Company Number: None

PATIENT
  Age: 64 Year
  Sex: Female
  Weight: 92.7 kg

DRUGS (12)
  1. PROZAC [Concomitant]
     Active Substance: FLUOXETINE HYDROCHLORIDE
  2. BROMELINE [Concomitant]
  3. MULTIVITAMIN [Concomitant]
     Active Substance: VITAMINS
  4. AZO CRANBERRY AND VIT C [Concomitant]
  5. VITAMIN B12 [Concomitant]
     Active Substance: CYANOCOBALAMIN
  6. KLONOPIN [Concomitant]
     Active Substance: CLONAZEPAM
  7. VITAMIN B?COMPLEX [Concomitant]
     Active Substance: DEXPANTHENOL\NIACINAMIDE\PYRIDOXINE HYDROCHLORIDE\RIBOFLAVIN 5^-PHOSPHATE SODIUM\THIAMINE HYDROCHLORIDE
  8. ROSUVASTATIN, GENERIC FOR CRESTOR [Suspect]
     Active Substance: ROSUVASTATIN CALCIUM
     Indication: BLOOD CHOLESTEROL INCREASED
     Dosage: ?          QUANTITY:1 TABLET(S);?
     Route: 048
     Dates: start: 20210920, end: 20210921
  9. WELLBUTRIN [Concomitant]
     Active Substance: BUPROPION HYDROCHLORIDE
  10. ESTRADIOL INTRAVAGINAL CREAM [Concomitant]
  11. URSODIOL. [Concomitant]
     Active Substance: URSODIOL
  12. ARNICA [Concomitant]
     Active Substance: ARNICA MONTANA FLOWER

REACTIONS (3)
  - Hypersensitivity [None]
  - Fall [None]
  - Headache [None]

NARRATIVE: CASE EVENT DATE: 20210920
